FAERS Safety Report 10276010 (Version 1)
Quarter: 2014Q3

REPORT INFORMATION
  Report Type: Spontaneous
  Country: US (occurrence: None)
  Receive Date: 20140701
  Receipt Date: 20140701
  Transmission Date: 20150326
  Serious: Yes (Hospitalization)
  Sender: FDA-Public Use
  Company Number: None

PATIENT
  Age: 46 Year
  Sex: Male
  Weight: 100.1 kg

DRUGS (2)
  1. RIFAPENTINE [Suspect]
     Active Substance: RIFAPENTINE
     Indication: INFECTION
     Route: 048
     Dates: start: 20140308, end: 20140320
  2. ISONIAZID. [Suspect]
     Active Substance: ISONIAZID
     Route: 048
     Dates: start: 20140308, end: 20140320

REACTIONS (7)
  - Dizziness [None]
  - Nausea [None]
  - Vomiting [None]
  - Fatigue [None]
  - Asthenia [None]
  - Myalgia [None]
  - Arthralgia [None]

NARRATIVE: CASE EVENT DATE: 20140319
